FAERS Safety Report 8198153-5 (Version None)
Quarter: 2012Q1

REPORT INFORMATION
  Report Type: 
  Country: None (occurrence: None)
  Receive Date: 20120309
  Receipt Date: 20111202
  Transmission Date: 20120608
  Serious: No
  Sender: FDA-Public Use
  Company Number: US-AMGEN-USASP2011064295

PATIENT
  Age: 79 Year
  Sex: Female
  Weight: 45.4 kg

DRUGS (1)
  1. PROLIA [Suspect]
     Indication: OSTEOPOROSIS POSTMENOPAUSAL
     Dosage: 60 MG, Q6MO
     Dates: start: 20111004

REACTIONS (11)
  - MENIERE'S DISEASE [None]
  - BREAST PAIN [None]
  - DROOLING [None]
  - BONE PAIN [None]
  - JOINT STIFFNESS [None]
  - ABDOMINAL PAIN UPPER [None]
  - SKIN EXFOLIATION [None]
  - SKIN DISORDER [None]
  - URINARY TRACT INFECTION [None]
  - SPEECH DISORDER [None]
  - PAIN [None]
